FAERS Safety Report 10081921 (Version 1)
Quarter: 2014Q2

REPORT INFORMATION
  Report Type: Spontaneous
  Country: CN (occurrence: CN)
  Receive Date: 20140416
  Receipt Date: 20140416
  Transmission Date: 20141212
  Serious: Yes (Other)
  Sender: FDA-Public Use
  Company Number: CN-GLAXOSMITHKLINE-B0979869A

PATIENT
  Age: 52 Year
  Sex: Male
  Weight: 60 kg

DRUGS (2)
  1. HEPSERA [Suspect]
     Indication: CHRONIC HEPATITIS B
     Dosage: 1TAB PER DAY
     Route: 048
     Dates: start: 2013
  2. HEPTODIN [Suspect]
     Indication: CHRONIC HEPATITIS B
     Dosage: 1TAB PER DAY
     Route: 048
     Dates: start: 2006

REACTIONS (2)
  - Abdominal discomfort [Recovered/Resolved]
  - Hepatitis B [Unknown]
